FAERS Safety Report 12386799 (Version 2)
Quarter: 2016Q2

REPORT INFORMATION
  Report Type: Spontaneous
  Country: CH (occurrence: CH)
  Receive Date: 20160519
  Receipt Date: 20160527
  Transmission Date: 20160815
  Serious: Yes (Hospitalization, Disabling, Other)
  Sender: FDA-Public Use
  Company Number: CH-JNJFOC-20160511522

PATIENT
  Age: 56 Year
  Sex: Male
  Weight: 158 kg

DRUGS (6)
  1. INVOKANA [Suspect]
     Active Substance: CANAGLIFLOZIN
     Indication: TYPE 2 DIABETES MELLITUS
     Dosage: DOSAGE: 1-0-0
     Route: 065
     Dates: start: 20140904
  2. TRESIBA [Concomitant]
     Active Substance: INSULIN DEGLUDEC
     Dosage: DOSAGE: 76-0-0-0
     Route: 065
     Dates: start: 20160414
  3. INVOKANA [Suspect]
     Active Substance: CANAGLIFLOZIN
     Indication: TYPE 2 DIABETES MELLITUS
     Dosage: DOSAGE: 0-0.5-0-0
     Route: 065
     Dates: start: 20150709
  4. LANTUS [Concomitant]
     Active Substance: INSULIN GLARGINE
     Dosage: DOSAGE: 20-0-0-24
     Route: 065
     Dates: start: 20140612, end: 20160414
  5. HUMALOG [Concomitant]
     Active Substance: INSULIN LISPRO
     Dosage: DOSAGE: 30-30-30-0
     Route: 065
     Dates: start: 20140612
  6. VOKANAMET [Suspect]
     Active Substance: CANAGLIFLOZIN\METFORMIN HYDROCHLORIDE
     Indication: TYPE 2 DIABETES MELLITUS
     Route: 065
     Dates: start: 20150709

REACTIONS (4)
  - Intentional overdose [Unknown]
  - Off label use [Unknown]
  - Drug prescribing error [Unknown]
  - Toe amputation [Unknown]

NARRATIVE: CASE EVENT DATE: 20150709
